FAERS Safety Report 5508612-9 (Version None)
Quarter: 2007Q4

REPORT INFORMATION
  Report Type: 
  Country: None (occurrence: None)
  Receive Date: 20071107
  Receipt Date: 20071105
  Transmission Date: 20080405
  Serious: Yes (Life-Threatening)
  Sender: FDA-Public Use
  Company Number: FR-BRISTOL-MYERS SQUIBB COMPANY-13970033

PATIENT
  Age: 62 Year
  Sex: Female

DRUGS (3)
  1. TAXOL INJ 6 MG/ML [Suspect]
     Indication: NEOPLASM MALIGNANT
     Dates: start: 20070619, end: 20070626
  2. CARBOPLATIN [Suspect]
     Indication: NEOPLASM MALIGNANT
     Route: 042
     Dates: start: 20070619, end: 20070626
  3. HERCEPTIN [Suspect]
     Indication: NEOPLASM MALIGNANT
     Route: 042
     Dates: start: 20070619, end: 20070626

REACTIONS (7)
  - DIARRHOEA [None]
  - ENTERITIS LEUKOPENIC [None]
  - JEJUNAL PERFORATION [None]
  - PANCYTOPENIA [None]
  - SHOCK [None]
  - SMALL INTESTINAL HAEMORRHAGE [None]
  - VOMITING [None]
